FAERS Safety Report 10053014 (Version 2)
Quarter: 2014Q2

REPORT INFORMATION
  Report Type: Spontaneous
  Country: DE (occurrence: None)
  Receive Date: 20140331
  Receipt Date: 20140610
  Transmission Date: 20141212
  Serious: Yes (Hospitalization, Other)
  Sender: FDA-Public Use
  Company Number: 2014-19265

PATIENT
  Age: 77 Year
  Sex: Female
  Weight: 51 kg

DRUGS (5)
  1. EYLEA [Suspect]
     Indication: AGE-RELATED MACULAR DEGENERATION
     Dosage: TOTAL OF 4 INJECTIONS OF EYLEA
     Route: 031
     Dates: end: 20140311
  2. OFTAQUIX (LEVOFLOXACIN) [Concomitant]
  3. CYCLOPENTOLAT (CYCLOPENTOLATE HYDROCHLORIDE) [Concomitant]
  4. BRAUNOL (POVIDONE-IODINE) [Concomitant]
  5. INFLANERFRAN (PREDNISOLONE ACETATE) [Concomitant]

REACTIONS (2)
  - Endophthalmitis [None]
  - Anterior chamber opacity [None]
